FAERS Safety Report 15098327 (Version 12)
Quarter: 2019Q2

REPORT INFORMATION
  Report Type: Report from Study
  Country: PE (occurrence: PE)
  Receive Date: 20180702
  Receipt Date: 20190606
  Transmission Date: 20190711
  Serious: Yes (Other)
  Sender: FDA-Public Use
  Company Number: PE-ALLERGAN-1767963US

PATIENT
  Sex: Male
  Weight: 66 kg

DRUGS (11)
  1. ACETAK [Concomitant]
     Dosage: 2 DF, SINGLE
     Dates: start: 20190220, end: 20190220
  2. BIMATOPROST. [Suspect]
     Active Substance: BIMATOPROST
     Indication: PRODUCT USED FOR UNKNOWN INDICATION
     Dosage: UNK
     Route: 031
     Dates: start: 20170922, end: 20170922
  3. CARBOXYMETHYLCELLULOSE SODIUM. [Concomitant]
     Active Substance: CARBOXYMETHYLCELLULOSE SODIUM
     Indication: PTERYGIUM
     Dosage: 1 GTT, Q4HR
     Route: 047
     Dates: start: 20170609
  4. MOXIFLOXACIN. [Concomitant]
     Active Substance: MOXIFLOXACIN
     Dosage: 1 GTT, SINGLE
     Dates: start: 20190220, end: 20190220
  5. XILOCAINA [Concomitant]
     Active Substance: LIDOCAINE
     Dosage: 1 GTT, SINGLE
     Dates: start: 20190220, end: 20190220
  6. TROPICAMIDE. [Concomitant]
     Active Substance: TROPICAMIDE
     Dosage: 1 GTT, SINGLE
     Dates: start: 20190220, end: 20190220
  7. PHENYLEPHRINE [Concomitant]
     Active Substance: PHENYLEPHRINE\PHENYLEPHRINE HYDROCHLORIDE
     Dosage: 1 GTT, SINGLE
     Dates: start: 20190220, end: 20190220
  8. LOSARTAN. [Concomitant]
     Active Substance: LOSARTAN
     Indication: HYPERTENSION
     Dosage: 50 MG, QD
     Route: 048
     Dates: start: 2016
  9. BIMATOPROST. [Suspect]
     Active Substance: BIMATOPROST
     Dosage: 10 ?G, SINGLE
     Route: 031
     Dates: start: 20170210, end: 20170210
  10. PROXYMETACAINE [Concomitant]
     Dosage: 1 GTT, SINGLE
     Dates: start: 20190220, end: 20190220
  11. LIDOCAINE. [Concomitant]
     Active Substance: LIDOCAINE
     Dosage: UNK, SINGLE
     Dates: start: 20190220, end: 20190220

REACTIONS (1)
  - Corneal endothelial cell loss [Recovered/Resolved]

NARRATIVE: CASE EVENT DATE: 20171124
